FAERS Safety Report 5739173-7 (Version None)
Quarter: 2008Q2

REPORT INFORMATION
  Report Type: 
  Country: None (occurrence: None)
  Receive Date: 20080515
  Receipt Date: 20080512
  Transmission Date: 20081010
  Serious: Yes (Death, Hospitalization)
  Sender: FDA-Public Use
  Company Number: B0520084A

PATIENT
  Age: 69 Year
  Sex: Male

DRUGS (9)
  1. HYCAMTIN [Suspect]
     Indication: SMALL CELL LUNG CANCER LIMITED STAGE
     Dosage: 1.6MG UNKNOWN
     Route: 065
     Dates: start: 20080304, end: 20080308
  2. OXYCODONE HYDROCHLORIDE [Concomitant]
     Dosage: 10MG PER DAY
     Route: 048
     Dates: start: 20080227, end: 20080331
  3. PREDNISOLONE [Concomitant]
     Dosage: 5MG PER DAY
     Route: 048
     Dates: start: 20070612, end: 20080331
  4. CIPRALAN [Concomitant]
     Dosage: 150MG PER DAY
     Dates: start: 20061220, end: 20080331
  5. AMLODIPINE BESILATE [Concomitant]
     Dosage: 5MG PER DAY
     Dates: end: 20080331
  6. VALSARTAN [Concomitant]
     Dosage: 80MG PER DAY
     Route: 048
     Dates: end: 20080331
  7. ALLOPURINOL [Concomitant]
     Dosage: 100MG PER DAY
     Route: 048
     Dates: start: 20070801, end: 20080331
  8. LANSOPRAZOLE [Concomitant]
     Dosage: 15MG PER DAY
     Route: 048
     Dates: start: 20080116, end: 20080331
  9. CHEMOTHERAPY [Concomitant]

REACTIONS (3)
  - DYSPNOEA [None]
  - INTERSTITIAL LUNG DISEASE [None]
  - RESPIRATORY FAILURE [None]
